FAERS Safety Report 17338330 (Version 1)
Quarter: 2020Q1

REPORT INFORMATION
  Report Type: Spontaneous
  Country: US (occurrence: US)
  Receive Date: 20200128
  Receipt Date: 20200128
  Transmission Date: 20200409
  Serious: Yes (Life-Threatening, Hospitalization)
  Sender: FDA-Public Use
  Company Number: None

PATIENT
  Age: 43 Year
  Sex: Male
  Weight: 92.25 kg

DRUGS (10)
  1. WELLBUTRIN [Concomitant]
     Active Substance: BUPROPION HYDROCHLORIDE
  2. EFFEXOR [Concomitant]
     Active Substance: VENLAFAXINE HYDROCHLORIDE
  3. DAILY MULTIVITAMIN [Concomitant]
     Active Substance: VITAMINS
  4. GAPABENTIN [Concomitant]
  5. MELATONIN [Concomitant]
     Active Substance: MELATONIN
  6. FLOMAX [Concomitant]
     Active Substance: TAMSULOSIN HYDROCHLORIDE
  7. NORVASC [Concomitant]
     Active Substance: AMLODIPINE BESYLATE
  8. ABILIFY [Concomitant]
     Active Substance: ARIPIPRAZOLE
  9. PROVIGIL [Suspect]
     Active Substance: MODAFINIL
     Indication: SHIFT WORK DISORDER
     Dates: start: 20190101, end: 20200110
  10. VITAMIN B12 [Concomitant]
     Active Substance: CYANOCOBALAMIN

REACTIONS (8)
  - Vomiting [None]
  - Feeling abnormal [None]
  - Drug tolerance [None]
  - Loss of consciousness [None]
  - Confusional state [None]
  - Acute kidney injury [None]
  - Intentional product misuse [None]
  - Acute hepatic failure [None]

NARRATIVE: CASE EVENT DATE: 20200111
